FAERS Safety Report 19310528 (Version 1)
Quarter: 2021Q2

REPORT INFORMATION
  Report Type: Spontaneous
  Country: JP (occurrence: JP)
  Receive Date: 20210526
  Receipt Date: 20210526
  Transmission Date: 20210717
  Serious: Yes (Other)
  Sender: FDA-Public Use
  Company Number: JP-PFIZER INC-2021563524

PATIENT

DRUGS (2)
  1. LYRICA [Suspect]
     Active Substance: PREGABALIN
  2. LORBRENA [Suspect]
     Active Substance: LORLATINIB

REACTIONS (4)
  - Affective disorder [Recovering/Resolving]
  - Neuropathy peripheral [Recovering/Resolving]
  - Hyperlipidaemia [Recovering/Resolving]
  - Oedema [Recovering/Resolving]
